FAERS Safety Report 8859614 (Version 1)
Quarter: 2012Q4

REPORT INFORMATION
  Report Type: Spontaneous
  Country: US (occurrence: None)
  Receive Date: 20121022
  Receipt Date: 20121022
  Transmission Date: 20130627
  Serious: Yes (Hospitalization)
  Sender: FDA-Public Use
  Company Number: 2012US-004410

PATIENT
  Age: 69 Year
  Sex: Female
  Weight: 70.4 kg

DRUGS (18)
  1. OMONTYS (PEGINESATIDE) SOLUTION FOR INJECTION [Suspect]
     Indication: NEPHROGENIC ANAEMIA
     Dosage: 20 mg, Q monthly, Intravenous
     Route: 042
     Dates: start: 20120908, end: 20120908
  2. OMONTYS (PEGINESATIDE) SOLUTION FOR INJECTION [Suspect]
     Indication: NEPHROGENIC ANAEMIA
     Dosage: 15 mg, Q monthly, Intravenous
     Route: 042
     Dates: start: 20120813, end: 20120813
  3. HEPARIN (HEPARIN) [Concomitant]
  4. REGLAN (METOCLOPRAMIDE) [Concomitant]
  5. RENAL CAPS DIALYSIS/STRESS VITAMIN SUPPLEMENT [Concomitant]
  6. ZESTRIL (LISINOPRIL) [Concomitant]
  7. VICODIN ES (HYDROCODONE BITARTRATE, PARACETAMOL) [Concomitant]
  8. ASA (ACETYLSALICYLIC ACID) [Concomitant]
  9. DIALYVITE 800 (ASCORBIC ACID, BIOTIN, FOLIC ACID, MECOBALAMIN, NICOTINIC ACID, PANTOTHENIC ACID, PYRIDOXINE HYDROCHLORIDE, RIBOFLAVIN, THIAMINE) [Concomitant]
  10. FOLIC ACID (FOLIC ACID) [Concomitant]
  11. KLONOPIN (CLONAZEPAM) [Concomitant]
  12. NIFEDIPINE (NIFEDIPINE) [Concomitant]
  13. APRESOLINE (HYDRALAZINE HYDROCHLORIDE) [Concomitant]
  14. BUMEX [Suspect]
  15. CALCIUM ACETATE (CALCIUM ACETATE) [Concomitant]
  16. COREG (CARVEDILOL) [Concomitant]
  17. CYANOCOBALAMIN (CYANOCOBALAMIN) [Concomitant]
  18. FERRLECIT (FERRIC SODIUM GLUCONATE COMPLEX) [Concomitant]

REACTIONS (5)
  - Pain [None]
  - Asthenia [None]
  - Hypotension [None]
  - Therapeutic response delayed [None]
  - Weight increased [None]
